FAERS Safety Report 7537224 (Version 4)
Quarter: 2013Q4

REPORT INFORMATION
  Report Type: Spontaneous
  Country: US (occurrence: US)
  Receive Date: 20100811
  Receipt Date: 20131204
  Transmission Date: 20140711
  Serious: Yes (Other)
  Sender: FDA-Public Use
  Company Number: US-BAYER-201029863NA

PATIENT
  Age: 37 Year
  Sex: Female

DRUGS (1)
  1. MIRENA [Suspect]
     Indication: MENORRHAGIA
     Dosage: 20 MCG/24HR, CONT
     Route: 015
     Dates: start: 20091015

REACTIONS (6)
  - Pregnancy with contraceptive device [None]
  - Menstruation delayed [None]
  - Drug ineffective [None]
  - Device dislocation [Unknown]
  - Abortion spontaneous [None]
  - Vaginal haemorrhage [None]
